FAERS Safety Report 8985330 (Version 1)
Quarter: 2012Q4

REPORT INFORMATION
  Report Type: 
  Country: AU (occurrence: AU)
  Receive Date: 20121226
  Receipt Date: 20121226
  Transmission Date: 20130627
  Serious: Yes (Death)
  Sender: FDA-Public Use
  Company Number: AU-B.I. PHARMACEUTICALS,INC./RIDGEFIELD-2012-AU-02015AU

PATIENT
  Sex: Male

DRUGS (7)
  1. PRADAXA [Suspect]
     Indication: CEREBROVASCULAR ACCIDENT PROPHYLAXIS
     Dosage: 300 mg
     Dates: start: 20110818
  2. PRADAXA [Suspect]
     Indication: ATRIAL FIBRILLATION
  3. LANOXIN [Concomitant]
  4. PANAMAX [Concomitant]
  5. TEMAZE [Concomitant]
  6. TRAMAL [Concomitant]
  7. ZOLOFT [Concomitant]

REACTIONS (1)
  - Death [Fatal]
